FAERS Safety Report 8303856-5 (Version None)
Quarter: 2012Q2

REPORT INFORMATION
  Report Type: 
  Country: None (occurrence: None)
  Receive Date: 20120423
  Receipt Date: 20120413
  Transmission Date: 20120825
  Serious: Yes (Other)
  Sender: FDA-Public Use
  Company Number: PHHY2012AR031617

PATIENT
  Age: 81 Year
  Sex: Male

DRUGS (7)
  1. MEMANTINE HCL [Concomitant]
     Dosage: 20 MG, UNK
  2. TAMSULOSIN HCL [Concomitant]
     Indication: PROSTATE CANCER
  3. ANTIOXIDANT COMPLEX [Concomitant]
  4. APPETITE STIMULANTS [Concomitant]
  5. CENTRUM [Concomitant]
  6. VENLAFAXINE [Concomitant]
     Dosage: 37.5 MG, UNK
  7. EXELON [Suspect]
     Indication: DEMENTIA ALZHEIMER'S TYPE
     Dosage: 4.6 MG/24 HS
     Route: 062
     Dates: start: 20100526

REACTIONS (5)
  - WEIGHT DECREASED [None]
  - SKIN BURNING SENSATION [None]
  - DECREASED APPETITE [None]
  - TONGUE NEOPLASM [None]
  - STOMATITIS [None]
